FAERS Safety Report 19365907 (Version 1)
Quarter: 2021Q2

REPORT INFORMATION
  Report Type: Spontaneous
  Country: US (occurrence: US)
  Receive Date: 20210603
  Receipt Date: 20210603
  Transmission Date: 20210717
  Serious: Yes (Death, Other)
  Sender: FDA-Public Use
  Company Number: None

PATIENT
  Age: 38 Year
  Sex: Male
  Weight: 69.75 kg

DRUGS (1)
  1. KRATOM WHITE MAENG DA [Suspect]
     Active Substance: HERBALS\MITRAGYNINE
     Indication: SUBSTANCE ABUSE
     Dosage: ?          QUANTITY:150 CAPSULE(S);?
     Route: 048

REACTIONS (3)
  - Seizure [None]
  - Toxicity to various agents [None]
  - Weight decreased [None]

NARRATIVE: CASE EVENT DATE: 20200830
